FAERS Safety Report 12497799 (Version 1)
Quarter: 2016Q2

REPORT INFORMATION
  Report Type: Spontaneous
  Country: US (occurrence: US)
  Receive Date: 20160625
  Receipt Date: 20160625
  Transmission Date: 20160815
  Serious: No
  Sender: FDA-Public Use
  Company Number: US-009507513-1606USA011427

PATIENT
  Sex: Female
  Weight: 95.25 kg

DRUGS (1)
  1. ASMANEX [Suspect]
     Active Substance: MOMETASONE FUROATE
     Indication: COUGH
     Dosage: 2 PUFFS AM AND PM; ROUTE: INHALER
     Dates: start: 20150113, end: 20151214

REACTIONS (2)
  - Cushingoid [Recovered/Resolved]
  - Weight increased [Recovered/Resolved]

NARRATIVE: CASE EVENT DATE: 2015
